FAERS Safety Report 6199319-6 (Version None)
Quarter: 2009Q2

REPORT INFORMATION
  Report Type: 
  Country: None (occurrence: None)
  Receive Date: 20090520
  Receipt Date: 20090520
  Transmission Date: 20091009
  Serious: Yes (Other)
  Sender: FDA-Public Use
  Company Number: None

PATIENT
  Age: 54 Year
  Sex: Male
  Weight: 106.5953 kg

DRUGS (1)
  1. LOTEMAX [Suspect]
     Indication: SEASONAL ALLERGY
     Dosage: 2 DROPS DAY INTRAOCULAR
     Route: 031
     Dates: start: 20090428, end: 20090509

REACTIONS (3)
  - PHOTOPHOBIA [None]
  - VISION BLURRED [None]
  - VISUAL IMPAIRMENT [None]
